FAERS Safety Report 13269538 (Version 1)
Quarter: 2017Q1

REPORT INFORMATION
  Report Type: Spontaneous
  Country: ES (occurrence: ES)
  Receive Date: 20170224
  Receipt Date: 20170224
  Transmission Date: 20170428
  Serious: Yes (Other)
  Sender: FDA-Public Use
  Company Number: ES-BAYER-2016-244881

PATIENT
  Age: 36 Year
  Sex: Female

DRUGS (4)
  1. PREDNISONE. [Suspect]
     Active Substance: PREDNISONE
     Dosage: 50 MG, QD
  2. ADIRO 300 MG [Suspect]
     Active Substance: ASPIRIN
     Dosage: 300 MG, QD
  3. PREDNISONE. [Suspect]
     Active Substance: PREDNISONE
     Dosage: 10 MG, QD
  4. METHOTREXATE. [Concomitant]
     Active Substance: METHOTREXATE
     Dosage: 20 MG/ WEEK

REACTIONS (5)
  - Susac^s syndrome [Unknown]
  - Headache [Unknown]
  - Retinal vascular disorder [Unknown]
  - Deafness [Unknown]
  - Retinal oedema [Unknown]
